FAERS Safety Report 17143892 (Version 2)
Quarter: 2019Q4

REPORT INFORMATION
  Report Type: Report from Study
  Country: AU (occurrence: AU)
  Receive Date: 20191212
  Receipt Date: 20191217
  Transmission Date: 20200122
  Serious: Yes (Hospitalization)
  Sender: FDA-Public Use
  Company Number: AU-AMGEN-AUSCT2019203935

PATIENT
  Age: 18 Year
  Sex: Male
  Weight: 71.55 kg

DRUGS (9)
  1. POSACONAZOLE [Concomitant]
     Active Substance: POSACONAZOLE
     Indication: PROPHYLAXIS
     Dosage: 300 MILLIGRAM
     Dates: start: 20191122
  2. DEXAMETHASONE. [Suspect]
     Active Substance: DEXAMETHASONE
     Indication: MUSCULOSKELETAL DISORDER
     Dosage: 8 MILLIGRAM, QD
     Route: 065
     Dates: start: 20191206, end: 20191209
  3. DEXAMETHASONE. [Suspect]
     Active Substance: DEXAMETHASONE
     Indication: ACUTE LYMPHOCYTIC LEUKAEMIA
     Dosage: 20 MILLIGRAM
     Route: 042
     Dates: start: 20191122
  4. SULFAMETHOXAZOLE AND TRIMETHOPRIM [Concomitant]
     Active Substance: SULFAMETHOXAZOLE\TRIMETHOPRIM
     Indication: PROPHYLAXIS
     Dosage: 800MG/160MG
     Dates: start: 20191011
  5. VALACICLOVIR [Concomitant]
     Active Substance: VALACYCLOVIR HYDROCHLORIDE
     Indication: PROPHYLAXIS
     Dosage: 500 MILLIGRAM
     Dates: start: 20191008
  6. BLINATUMOMAB [Suspect]
     Active Substance: BLINATUMOMAB
     Indication: ACUTE LYMPHOCYTIC LEUKAEMIA
     Dosage: 28 MICROGRAM
     Route: 042
     Dates: start: 20191122
  7. PARACETAMOL [Concomitant]
     Active Substance: ACETAMINOPHEN
     Indication: PAIN
     Dosage: 1 GRAM, AS NECESSARY
     Dates: start: 20191002
  8. METHOTREXATE. [Suspect]
     Active Substance: METHOTREXATE
     Indication: ACUTE LYMPHOCYTIC LEUKAEMIA
     Dosage: 12 MILLIGRAM
     Route: 037
     Dates: start: 20191122
  9. PANTOPRAZOLE [Concomitant]
     Active Substance: PANTOPRAZOLE
     Dosage: 40 MILLIGRAM
     Dates: start: 20191011

REACTIONS (2)
  - Connective tissue disorder [Recovered/Resolved]
  - Musculoskeletal disorder [Recovered/Resolved]

NARRATIVE: CASE EVENT DATE: 20191204
